FAERS Safety Report 19690722 (Version 1)
Quarter: 2021Q3

REPORT INFORMATION
  Report Type: Spontaneous
  Country: US (occurrence: US)
  Receive Date: 20210812
  Receipt Date: 20210812
  Transmission Date: 20211014
  Serious: No
  Sender: FDA-Public Use
  Company Number: US-ELI_LILLY_AND_COMPANY-US202108003651

PATIENT
  Age: 81 Year
  Sex: Male

DRUGS (1)
  1. CIALIS [Suspect]
     Active Substance: TADALAFIL
     Indication: ERECTILE DYSFUNCTION
     Dosage: TOOK IT ABOUT 3 TIMES PER YEAR
     Route: 048
     Dates: start: 2011, end: 2012

REACTIONS (1)
  - Cyanopsia [Recovered/Resolved]

NARRATIVE: CASE EVENT DATE: 2011
